FAERS Safety Report 22276497 (Version 1)
Quarter: 2023Q2

REPORT INFORMATION
  Report Type: Report from Study
  Country: CA (occurrence: CA)
  Receive Date: 20230503
  Receipt Date: 20230503
  Transmission Date: 20230722
  Serious: Yes (Hospitalization, Other)
  Sender: FDA-Public Use
  Company Number: CA-ABBVIE-4734699

PATIENT
  Age: 80 Year
  Sex: Male
  Weight: 73 kg

DRUGS (4)
  1. VENCLEXTA [Suspect]
     Active Substance: VENETOCLAX
     Indication: Acute myeloid leukaemia
     Route: 048
     Dates: start: 20230418
  2. VENCLEXTA [Suspect]
     Active Substance: VENETOCLAX
     Indication: Acute myeloid leukaemia
     Dosage: 100MG ONCE DAILY WEEK 2: 200MG ONCE DAILY WEEK 3 AND ONWARDS: 400MG ONCE DAILY
     Route: 048
     Dates: start: 20230328, end: 20230405
  3. AZACITIDINE [Concomitant]
     Active Substance: AZACITIDINE
     Indication: Acute myeloid leukaemia recurrent
     Route: 058
     Dates: start: 20230313, end: 20230320
  4. AZACITIDINE [Concomitant]
     Active Substance: AZACITIDINE
     Indication: Acute myeloid leukaemia recurrent
     Route: 058
     Dates: start: 20230417, end: 20230425

REACTIONS (6)
  - Confusional state [Recovered/Resolved]
  - Pancytopenia [Unknown]
  - Hospitalisation [Unknown]
  - Pyrexia [Unknown]
  - Pneumonia [Unknown]
  - Haemoglobin decreased [Unknown]

NARRATIVE: CASE EVENT DATE: 20230301
